FAERS Safety Report 6738772-3 (Version None)
Quarter: 2010Q2

REPORT INFORMATION
  Report Type: 
  Country: None (occurrence: None)
  Receive Date: 20100524
  Receipt Date: 20100412
  Transmission Date: 20101027
  Serious: Yes (Life-Threatening, Other)
  Sender: FDA-Public Use
  Company Number: US-BAXTER-2009BH011153

PATIENT
  Age: 59 Year
  Sex: Female
  Weight: 68 kg

DRUGS (14)
  1. HEPARIN SODIUM INJECTION [Suspect]
     Indication: THROMBOSIS PROPHYLAXIS
     Route: 042
     Dates: start: 20071203
  2. HEPARIN SODIUM INJECTION [Suspect]
     Route: 058
     Dates: start: 20071214
  3. SIMVASTATIN [Concomitant]
     Indication: DRUG USE FOR UNKNOWN INDICATION
     Route: 065
  4. PAXIL [Concomitant]
     Indication: DRUG USE FOR UNKNOWN INDICATION
     Route: 065
  5. AMARYL [Concomitant]
     Indication: DRUG USE FOR UNKNOWN INDICATION
     Route: 065
  6. ZEBETA [Concomitant]
     Indication: DRUG USE FOR UNKNOWN INDICATION
     Route: 065
  7. LANTUS [Concomitant]
     Indication: DRUG USE FOR UNKNOWN INDICATION
     Route: 065
  8. VITAMIN D [Concomitant]
     Indication: DRUG USE FOR UNKNOWN INDICATION
     Route: 065
  9. PAXIL [Concomitant]
     Route: 065
  10. LANTUS [Concomitant]
     Route: 065
  11. AMARYL [Concomitant]
     Route: 065
  12. BISOPROLOL FUMARATE [Concomitant]
     Indication: DRUG USE FOR UNKNOWN INDICATION
     Route: 065
  13. DYAZIDE [Concomitant]
     Indication: DRUG USE FOR UNKNOWN INDICATION
     Route: 065
  14. ATORVASTATIN CALCIUM [Concomitant]
     Indication: DRUG USE FOR UNKNOWN INDICATION
     Route: 065

REACTIONS (24)
  - AMNESIA [None]
  - ANXIETY [None]
  - ATRIAL FIBRILLATION [None]
  - CARDIAC FAILURE [None]
  - CARDIAC TAMPONADE [None]
  - CONFUSIONAL STATE [None]
  - DEPRESSION [None]
  - DIARRHOEA [None]
  - DISTURBANCE IN ATTENTION [None]
  - FEELING HOT [None]
  - HYPERGLYCAEMIA [None]
  - HYPERHIDROSIS [None]
  - HYPOTENSION [None]
  - HYPOXIC ENCEPHALOPATHY [None]
  - MALNUTRITION [None]
  - NAUSEA [None]
  - PNEUMONIA [None]
  - PRURITUS [None]
  - RENAL FAILURE [None]
  - RESPIRATORY FAILURE [None]
  - SHOCK [None]
  - SKIN BURNING SENSATION [None]
  - STAPHYLOCOCCAL BACTERAEMIA [None]
  - VOMITING [None]
